FAERS Safety Report 15852523 (Version 1)
Quarter: 2019Q1

REPORT INFORMATION
  Report Type: Spontaneous
  Country: AU (occurrence: AU)
  Receive Date: 20190122
  Receipt Date: 20190122
  Transmission Date: 20190417
  Serious: Yes (Hospitalization, Other)
  Sender: FDA-Public Use
  Company Number: AU-MICRO LABS LIMITED-ML2019-00065

PATIENT
  Age: 36 Year
  Sex: Female

DRUGS (12)
  1. CEFTRIAXONE. [Suspect]
     Active Substance: CEFTRIAXONE
     Indication: CHOLECYSTITIS
  2. METRONIDAZOLE. [Suspect]
     Active Substance: METRONIDAZOLE
     Indication: CHOLECYSTITIS
  3. METRONIDAZOLE. [Suspect]
     Active Substance: METRONIDAZOLE
     Indication: BILE DUCT STONE
  4. MESALAZINE [Concomitant]
     Active Substance: MESALAMINE
     Indication: CROHN^S DISEASE
  5. BENZYLPENICILLIN [Suspect]
     Active Substance: PENICILLIN G
  6. TAZOCIN [Suspect]
     Active Substance: PIPERACILLIN SODIUM\TAZOBACTAM SODIUM
  7. OSELTAMIVIR [Concomitant]
     Active Substance: OSELTAMIVIR
     Indication: RHINITIS
  8. CEFTRIAXONE. [Suspect]
     Active Substance: CEFTRIAXONE
     Indication: BILE DUCT STONE
  9. CEPHALEXIN. [Suspect]
     Active Substance: CEPHALEXIN
     Indication: RHINITIS
  10. CIPROFLOXACIN. [Suspect]
     Active Substance: CIPROFLOXACIN
  11. ESCITALOPRAM [Suspect]
     Active Substance: ESCITALOPRAM OXALATE
     Indication: CROHN^S DISEASE
  12. CLINDAMYCIN. [Suspect]
     Active Substance: CLINDAMYCIN

REACTIONS (6)
  - Idiosyncratic drug reaction [Recovering/Resolving]
  - Hepatitis infectious mononucleosis [Recovering/Resolving]
  - Rash [Unknown]
  - Drug-induced liver injury [Recovering/Resolving]
  - Swelling face [Unknown]
  - Hypersensitivity [Recovering/Resolving]
